FAERS Safety Report 5303484-X (Version None)
Quarter: 2007Q2

REPORT INFORMATION
  Report Type: 
  Country: None (occurrence: None)
  Receive Date: 20070420
  Receipt Date: 20070410
  Transmission Date: 20071010
  Serious: Yes (Hospitalization, Other)
  Sender: FDA-Public Use
  Company Number: US-PFIZER INC-2006137111

PATIENT
  Sex: Female
  Weight: 83.9 kg

DRUGS (6)
  1. CHANTIX [Suspect]
     Indication: SMOKING CESSATION THERAPY
     Dates: start: 20061004, end: 20061009
  2. METFORMIN HCL [Concomitant]
     Indication: DIABETES MELLITUS
     Route: 048
  3. BENICAR HCT [Concomitant]
     Indication: HYPERTENSION
     Dosage: TEXT:40/25
     Route: 048
  4. ALPRAZOLAM [Concomitant]
     Indication: ANXIETY
  5. AMBIEN [Concomitant]
     Dosage: FREQ:PRN
  6. DETROL LA [Concomitant]

REACTIONS (10)
  - BACK PAIN [None]
  - BLOOD CREATINE PHOSPHOKINASE INCREASED [None]
  - BLOOD POTASSIUM DECREASED [None]
  - BLOOD SODIUM DECREASED [None]
  - CHEST PAIN [None]
  - DIZZINESS [None]
  - HEADACHE [None]
  - INAPPROPRIATE ANTIDIURETIC HORMONE SECRETION [None]
  - PAIN IN EXTREMITY [None]
  - POLYDIPSIA [None]
